FAERS Safety Report 9916692 (Version 2)
Quarter: 2014Q1

REPORT INFORMATION
  Report Type: Spontaneous
  Country: JP (occurrence: JP)
  Receive Date: 20140221
  Receipt Date: 20140304
  Transmission Date: 20141002
  Serious: Yes (Other)
  Sender: FDA-Public Use
  Company Number: JP-PFIZER INC-2014046276

PATIENT
  Sex: Male

DRUGS (2)
  1. HALCION [Suspect]
     Dosage: UNK
     Route: 048
  2. RITONAVIR [Interacting]
     Dosage: 100 OR 200 MG

REACTIONS (3)
  - Drug interaction [Unknown]
  - Loss of consciousness [Unknown]
  - Fall [Unknown]
